FAERS Safety Report 25352806 (Version 1)
Quarter: 2025Q2

REPORT INFORMATION
  Report Type: Spontaneous
  Country: CN (occurrence: CN)
  Receive Date: 20250523
  Receipt Date: 20250523
  Transmission Date: 20250717
  Serious: Yes (Other)
  Sender: BAYER HEALTHCARE PHARMACEUTICALS INC.
  Company Number: CN-BAYER-2025A069353

PATIENT
  Age: 91 Year
  Sex: Male
  Weight: 58 kg

DRUGS (3)
  1. AVELOX [Suspect]
     Active Substance: MOXIFLOXACIN HYDROCHLORIDE
     Indication: Pleural effusion
     Dosage: 0.4 G, QD
     Route: 041
     Dates: start: 20250409, end: 20250415
  2. AVELOX [Suspect]
     Active Substance: MOXIFLOXACIN HYDROCHLORIDE
     Indication: Anti-infective therapy
  3. Live combined bifidobacterium and lactobacillus [Concomitant]
     Indication: Gastrointestinal disorder prophylaxis
     Dosage: 4 DF, BID
     Route: 048
     Dates: start: 20250408, end: 20250414

REACTIONS (3)
  - Depressed level of consciousness [Recovered/Resolved]
  - Dysarthria [Recovered/Resolved]
  - Dysphoria [Recovering/Resolving]

NARRATIVE: CASE EVENT DATE: 20250415
